FAERS Safety Report 7938921-5 (Version None)
Quarter: 2011Q4

REPORT INFORMATION
  Report Type: 
  Country: None (occurrence: None)
  Receive Date: 20111124
  Receipt Date: 20111118
  Transmission Date: 20120403
  Serious: Yes (Life-Threatening, Hospitalization)
  Sender: FDA-Public Use
  Company Number: ES-AMGEN-ESPCT2011059576

PATIENT
  Age: 71 Year
  Sex: Male

DRUGS (5)
  1. PANITUMUMAB [Suspect]
     Indication: COLORECTAL CANCER METASTATIC
     Dosage: 6 MG/KG, Q2WK
     Route: 042
     Dates: start: 20111109, end: 20111109
  2. LEUCOVORIN CALCIUM [Concomitant]
     Dosage: 400 MG/M2, Q2WK
     Route: 042
     Dates: start: 20111109, end: 20111109
  3. OXALIPLATIN [Concomitant]
     Indication: COLORECTAL CANCER METASTATIC
     Dosage: 85 MG/M2, Q2WK
     Route: 042
     Dates: start: 20111109, end: 20111109
  4. FLUOROURACIL [Concomitant]
     Dosage: 2400 MG/KG, Q2WK
     Route: 042
     Dates: start: 20111109, end: 20111109
  5. FLUOROURACIL [Concomitant]
     Dosage: 400 MG/KG, Q2WK
     Route: 042
     Dates: start: 20111109, end: 20111109

REACTIONS (1)
  - MYOCARDIAL ISCHAEMIA [None]
